FAERS Safety Report 6946064-2 (Version None)
Quarter: 2010Q3

REPORT INFORMATION
  Report Type: 
  Country: None (occurrence: None)
  Receive Date: 20100827
  Receipt Date: 20100315
  Transmission Date: 20110219
  Serious: No
  Sender: FDA-Public Use
  Company Number: A0845481A

PATIENT
  Sex: Female

DRUGS (6)
  1. ZOVIRAX [Suspect]
     Dosage: 5G UNKNOWN
     Route: 065
     Dates: start: 20100202, end: 20100206
  2. ABREVA [Suspect]
     Indication: PRODUCT USED FOR UNKNOWN INDICATION
  3. LYRICA [Concomitant]
  4. SIMVASTATIN [Concomitant]
  5. MULTI-VITAMIN [Concomitant]
  6. CALCIUM [Concomitant]

REACTIONS (9)
  - APPLICATION SITE PAIN [None]
  - APPLICATION SITE PARAESTHESIA [None]
  - BLISTER [None]
  - DRUG INEFFECTIVE [None]
  - LIP SWELLING [None]
  - ORAL HERPES [None]
  - PRODUCT QUALITY ISSUE [None]
  - SCAB [None]
  - SKIN EXFOLIATION [None]
